FAERS Safety Report 19469658 (Version 7)
Quarter: 2022Q4

REPORT INFORMATION
  Report Type: Report from Study
  Country: CA (occurrence: CA)
  Receive Date: 20210629
  Receipt Date: 20221225
  Transmission Date: 20230112
  Serious: Yes (Other)
  Sender: FDA-Public Use
  Company Number: CA-JNJFOC-20210556825

PATIENT
  Age: 3 Year
  Sex: Female
  Weight: 16 kg

DRUGS (4)
  1. REMICADE [Suspect]
     Active Substance: INFLIXIMAB
     Indication: Colitis ulcerative
     Route: 042
     Dates: start: 2021
  2. REMICADE [Suspect]
     Active Substance: INFLIXIMAB
     Dosage: ON 16-JUN-2021, THE PATIENT RECEIVED 1ST 250 MG OF INFLIXIMAB, RECOMBINANT INFUSION.?WILL CONTINUE A
     Route: 042
     Dates: start: 20210611
  3. REMICADE [Suspect]
     Active Substance: INFLIXIMAB
     Dosage: ON 02-SEP-2021, THE PATIENT RECEIVED 5TH DOSE OF REMICADE. THE PATIENT ALSO RECEIVED INFUSION ON 17-
     Route: 042
     Dates: start: 2021
  4. REMICADE [Suspect]
     Active Substance: INFLIXIMAB
     Route: 042

REACTIONS (5)
  - Colitis ulcerative [Not Recovered/Not Resolved]
  - Drug specific antibody present [Unknown]
  - Drug level decreased [Unknown]
  - Therapeutic response decreased [Unknown]
  - Off label use [Unknown]

NARRATIVE: CASE EVENT DATE: 20210101
